FAERS Safety Report 9766250 (Version 1)
Quarter: 2013Q4

REPORT INFORMATION
  Report Type: Spontaneous
  Country: US (occurrence: US)
  Receive Date: 20131217
  Receipt Date: 20131217
  Transmission Date: 20140711
  Serious: No
  Sender: FDA-Public Use
  Company Number: US-GLAXOSMITHKLINE-A1047017A

PATIENT
  Age: 63 Year
  Sex: Female

DRUGS (1)
  1. MEKINIST [Suspect]
     Indication: MALIGNANT MELANOMA
     Dosage: 2MG UNKNOWN
     Dates: start: 20130829

REACTIONS (5)
  - Skin fissures [Unknown]
  - Cheilitis [Unknown]
  - Chapped lips [Unknown]
  - Tongue ulceration [Unknown]
  - Epistaxis [Unknown]
